FAERS Safety Report 8144683-1 (Version None)
Quarter: 2012Q1

REPORT INFORMATION
  Report Type: 
  Country: None (occurrence: None)
  Receive Date: 20120214
  Receipt Date: 20120208
  Transmission Date: 20120608
  Serious: Yes (Hospitalization)
  Sender: FDA-Public Use
  Company Number: 2012AL000011

PATIENT
  Age: 34 Year
  Sex: Female

DRUGS (1)
  1. FOLOTYN [Suspect]
     Indication: PERIPHERAL T-CELL LYMPHOMA UNSPECIFIED
     Dosage: ;QW;IV
     Route: 042
     Dates: start: 20110518, end: 20120120

REACTIONS (8)
  - BLOOD PRESSURE INCREASED [None]
  - APHTHOUS STOMATITIS [None]
  - PLATELET COUNT INCREASED [None]
  - BLISTER [None]
  - DRUG DOSE OMISSION [None]
  - RED BLOOD CELL COUNT DECREASED [None]
  - ABDOMINAL PAIN UPPER [None]
  - CATHETER SITE CELLULITIS [None]
